FAERS Safety Report 18274337 (Version 1)
Quarter: 2020Q3

REPORT INFORMATION
  Report Type: Spontaneous
  Country: US (occurrence: US)
  Receive Date: 20200916
  Receipt Date: 20200916
  Transmission Date: 20201103
  Serious: No
  Sender: FDA-Public Use
  Company Number: US-XERIS PHARMACEUTICALS-2020XER00007

PATIENT

DRUGS (2)
  1. GVOKE [Suspect]
     Active Substance: GLUCAGON
  2. GVOKE [Suspect]
     Active Substance: GLUCAGON
     Dosage: UNK

REACTIONS (1)
  - Needle issue [Not Recovered/Not Resolved]
